FAERS Safety Report 5388982-5 (Version None)
Quarter: 2007Q3

REPORT INFORMATION
  Report Type: 
  Country: None (occurrence: None)
  Receive Date: 20070717
  Receipt Date: 20070709
  Transmission Date: 20080115
  Serious: Yes (Other)
  Sender: FDA-Public Use
  Company Number: PHNU2007DE01084

PATIENT
  Sex: Male

DRUGS (4)
  1. AREDIA [Suspect]
     Indication: PLASMACYTOMA
     Dosage: 1 DF, QMO
     Route: 042
     Dates: start: 20050101, end: 20070201
  2. ZOMETA [Suspect]
     Indication: MULTIPLE MYELOMA
     Dosage: 4 MG, QMO
     Route: 042
     Dates: start: 20030101, end: 20050101
  3. ANTIHYPERTENSIVE DRUGS [Concomitant]
     Route: 065
  4. LIPID MODIFYING AGENTS [Concomitant]
     Route: 065

REACTIONS (9)
  - BIOPSY SITE UNSPECIFIED ABNORMAL [None]
  - BONE CYST [None]
  - CYST REMOVAL [None]
  - DENTAL PROSTHESIS USER [None]
  - LOOSE TOOTH [None]
  - NECROTISING ULCERATIVE PERIODONTITIS [None]
  - SEQUESTRECTOMY [None]
  - SOFT TISSUE INFLAMMATION [None]
  - TOOTH EXTRACTION [None]
